FAERS Safety Report 9385204 (Version 1)
Quarter: 2013Q2

REPORT INFORMATION
  Report Type: Spontaneous
  Country: US (occurrence: None)
  Receive Date: 20130628
  Receipt Date: 20130628
  Transmission Date: 20140414
  Serious: Yes (Disabling)
  Sender: FDA-Public Use
  Company Number: 2013AP006292

PATIENT
  Age: 69 Year
  Sex: Female

DRUGS (2)
  1. ROPINIROLE HYDROCHLORIDE [Suspect]
     Indication: RESTLESS LEGS SYNDROME
  2. CLONAZEPAM [Concomitant]

REACTIONS (26)
  - Impulse-control disorder [None]
  - Drug withdrawal syndrome [None]
  - Dopamine dysregulation syndrome [None]
  - Stereotypy [None]
  - Restless legs syndrome [None]
  - Condition aggravated [None]
  - Periodic limb movement disorder [None]
  - Tremor [None]
  - Insomnia [None]
  - Drug intolerance [None]
  - Self-medication [None]
  - Incorrect dose administered [None]
  - Drug tolerance [None]
  - Quality of life decreased [None]
  - Food craving [None]
  - Hyperphagia [None]
  - Weight increased [None]
  - Compulsive shopping [None]
  - Compulsive hoarding [None]
  - Agitation [None]
  - Anxiety [None]
  - Crying [None]
  - Dysphoria [None]
  - Hyperhidrosis [None]
  - Irritability [None]
  - Fatigue [None]
